FAERS Safety Report 9157443 (Version 1)
Quarter: 2013Q1

REPORT INFORMATION
  Report Type: Spontaneous
  Country: DK (occurrence: None)
  Receive Date: 20130213
  Receipt Date: 20130213
  Transmission Date: 20140127
  Serious: Yes (Other)
  Sender: FDA-Public Use
  Company Number: FK201300390

PATIENT
  Age: 41 Year
  Sex: Male

DRUGS (1)
  1. ROPIVACAINE [Suspect]
     Indication: PAIN MANAGEMENT
     Dosage: 7.5 MG/ML 20ML AT EACH OF THE FOUR POIN
     Route: 053

REACTIONS (5)
  - Loss of consciousness [None]
  - Convulsion [None]
  - Incoherent [None]
  - Toxicity to various agents [None]
  - Opisthotonus [None]
